FAERS Safety Report 9828351 (Version 3)
Quarter: 2014Q1

REPORT INFORMATION
  Report Type: Spontaneous
  Country: US (occurrence: US)
  Receive Date: 20140117
  Receipt Date: 20140314
  Transmission Date: 20141002
  Serious: Yes (Other)
  Sender: FDA-Public Use
  Company Number: 2014SP000102

PATIENT
  Age: 49 Year
  Sex: Female

DRUGS (17)
  1. LATUDA [Suspect]
     Indication: BORDERLINE PERSONALITY DISORDER
     Route: 048
     Dates: start: 20140102, end: 20140103
  2. LATUDA [Suspect]
     Indication: BORDERLINE PERSONALITY DISORDER
     Route: 048
     Dates: start: 20140107
  3. SYNTHROID [Concomitant]
     Indication: HYPOTHYROIDISM
     Route: 048
  4. ZESTRIL [Concomitant]
     Indication: HYPERTENSION
     Route: 048
  5. VITAMIN D3 [Concomitant]
     Indication: MEDICAL DIET
     Route: 048
  6. K-DUR [Concomitant]
     Indication: MEDICAL DIET
     Route: 048
  7. HYDROCHLOROTHIAZIDE [Concomitant]
     Indication: HYPERTENSION
     Route: 048
  8. MAGNESIUM OXIDE [Concomitant]
     Indication: MEDICAL DIET
     Route: 048
  9. AMBIEN [Concomitant]
     Route: 048
  10. TRIAMTERENE/HCTZ [Concomitant]
     Route: 048
  11. PREMARIN [Concomitant]
     Route: 048
  12. PREMARIN [Concomitant]
     Route: 067
  13. VIIBRYD [Concomitant]
     Route: 048
  14. VIIBRYD [Concomitant]
     Route: 048
  15. VIIBRYD [Concomitant]
     Route: 048
  16. TRAZODONE [Concomitant]
     Route: 048
  17. TRAZODONE [Concomitant]
     Route: 048

REACTIONS (7)
  - Loss of consciousness [Recovered/Resolved]
  - Ageusia [Recovered/Resolved]
  - Anosmia [Recovered/Resolved]
  - Hypoaesthesia [Recovered/Resolved]
  - Drug ineffective for unapproved indication [None]
  - Urinary tract infection [Not Recovered/Not Resolved]
  - Anxiety [Recovered/Resolved]
